FAERS Safety Report 8686546 (Version 7)
Quarter: 2013Q4

REPORT INFORMATION
  Report Type: Spontaneous
  Country: US (occurrence: US)
  Receive Date: 20120726
  Receipt Date: 20131230
  Transmission Date: 20140711
  Serious: Yes (Hospitalization, Other)
  Sender: FDA-Public Use
  Company Number: US-MSD-1207USA005904

PATIENT
  Sex: Female

DRUGS (10)
  1. FOSAMAX [Suspect]
     Indication: OSTEOPOROSIS
     Dosage: 70 MG, UNK
     Route: 048
     Dates: start: 20010109, end: 20080311
  2. FOSAMAX [Suspect]
     Indication: OSTEOPENIA
  3. FOSAMAX [Suspect]
     Indication: OSTEOPOROSIS
     Dosage: 70 MG, UNK
     Route: 048
     Dates: start: 20080311, end: 20100721
  4. FOSAMAX [Suspect]
     Indication: OSTEOPENIA
  5. VITAMIN E [Concomitant]
     Dosage: 400 IU, QD
     Dates: start: 1980
  6. CALCIUM (UNSPECIFIED) (+) VITAMIN D (UNSPECIFIED) [Concomitant]
     Dosage: 600 MG, QD
     Dates: start: 1980
  7. PRILOSEC [Concomitant]
     Dosage: UNK
     Dates: start: 1999
  8. CYCLOSPORINE [Concomitant]
     Indication: PROPHYLAXIS AGAINST TRANSPLANT REJECTION
     Dosage: UNK
     Dates: start: 1999
  9. LASIX (FUROSEMIDE) [Concomitant]
     Dosage: UNK, PRN
     Dates: start: 1999
  10. CORTICOSTEROIDS (UNSPECIFIED) [Concomitant]
     Dosage: UNK, PRN
     Dates: start: 1999

REACTIONS (32)
  - Femur fracture [Unknown]
  - Open reduction of fracture [Unknown]
  - Femur fracture [Unknown]
  - Open reduction of fracture [Unknown]
  - Basal cell carcinoma [Unknown]
  - Lung transplant [Unknown]
  - Secondary adrenocortical insufficiency [Unknown]
  - Renal failure chronic [Not Recovered/Not Resolved]
  - Femur fracture [Unknown]
  - Femur fracture [Unknown]
  - Femur fracture [Unknown]
  - Lung transplant rejection [Not Recovered/Not Resolved]
  - Cardiomegaly [Unknown]
  - Foreign body [Unknown]
  - Low turnover osteopathy [Unknown]
  - Rib fracture [Recovered/Resolved]
  - Cardiomyopathy [Unknown]
  - Skin neoplasm excision [Unknown]
  - Osteoarthritis [Unknown]
  - Fall [Unknown]
  - Lung infiltration [Unknown]
  - Pleural effusion [Unknown]
  - Diabetes mellitus [Unknown]
  - Diabetic neuropathy [Unknown]
  - Haemorrhoids [Unknown]
  - Colon adenoma [Unknown]
  - Cancer surgery [Unknown]
  - Intestinal resection [Unknown]
  - Breast cyst [Unknown]
  - Peripheral nerve operation [Unknown]
  - Cyst [Unknown]
  - Gastrooesophageal reflux disease [Unknown]
